FAERS Safety Report 6301222-5 (Version None)
Quarter: 2009Q3

REPORT INFORMATION
  Report Type: 
  Country: None (occurrence: None)
  Receive Date: 20090807
  Receipt Date: 20080404
  Transmission Date: 20100115
  Serious: Yes (Other)
  Sender: FDA-Public Use
  Company Number: US-ASTRAZENECA-2007UW25224

PATIENT
  Age: 18108 Day
  Sex: Female

DRUGS (15)
  1. SEROQUEL [Suspect]
     Indication: INSOMNIA
     Dosage: 100MG - 600MG
     Route: 048
     Dates: start: 20060401, end: 20070401
  2. SEROQUEL [Suspect]
     Indication: ANXIETY
     Dosage: 100MG - 600MG
     Route: 048
     Dates: start: 20060401, end: 20070401
  3. SEROQUEL [Suspect]
     Indication: DEPRESSION
     Dosage: 100MG - 600MG
     Route: 048
     Dates: start: 20060401, end: 20070401
  4. SEROQUEL [Suspect]
     Route: 048
     Dates: start: 20060426
  5. SEROQUEL [Suspect]
     Route: 048
     Dates: start: 20060426
  6. SEROQUEL [Suspect]
     Route: 048
     Dates: start: 20060426
  7. DICYCLOMINE [Concomitant]
     Dates: start: 20060426
  8. SINGULAIR [Concomitant]
     Dates: start: 20060426
  9. PREVACID [Concomitant]
     Dates: start: 20060426
  10. NABUMETONE [Concomitant]
     Route: 048
     Dates: start: 20060426
  11. NAPROXEN [Concomitant]
     Dates: start: 20070516
  12. PROTONIX [Concomitant]
     Dates: start: 20070905
  13. LIPITOR [Concomitant]
     Indication: HYPERLIPIDAEMIA
     Route: 048
     Dates: start: 20070905
  14. LASIX [Concomitant]
     Dates: start: 20070905
  15. DIFLUCAN [Concomitant]
     Dates: start: 20080319

REACTIONS (3)
  - DIABETES MELLITUS [None]
  - NEUROPATHY PERIPHERAL [None]
  - TYPE 2 DIABETES MELLITUS [None]
